FAERS Safety Report 6532737-2 (Version None)
Quarter: 2009Q4

REPORT INFORMATION
  Report Type: 
  Country: None (occurrence: None)
  Receive Date: 20091231
  Receipt Date: 20091228
  Transmission Date: 20100525
  Serious: Yes (Death)
  Sender: FDA-Public Use
  Company Number: 20097861

PATIENT
  Sex: Female

DRUGS (5)
  1. LIORESAL [Suspect]
     Indication: MUSCLE SPASTICITY
     Dosage: 639.48 MCG, DAILY, INTRATHECAL
     Route: 037
  2. DILAUDID [Concomitant]
  3. BUPIVACAINE [Concomitant]
  4. DROPERIDOL [Concomitant]
  5. CLONIDINE [Concomitant]

REACTIONS (1)
  - DEATH [None]
